FAERS Safety Report 15299789 (Version 2)
Quarter: 2018Q3

REPORT INFORMATION
  Report Type: Report from Study
  Country: None (occurrence: US)
  Receive Date: 20180821
  Receipt Date: 20180829
  Transmission Date: 20181010
  Serious: Yes (Hospitalization)
  Sender: FDA-Public Use
  Company Number: US-ABBVIE-18K-163-2452654-00

PATIENT
  Age: 75 Year
  Sex: Female

DRUGS (1)
  1. HUMIRA [Suspect]
     Active Substance: ADALIMUMAB
     Indication: COLITIS ULCERATIVE
     Route: 058
     Dates: start: 20180504

REACTIONS (4)
  - Urinary tract infection [Not Recovered/Not Resolved]
  - Loss of consciousness [Unknown]
  - Nodule [Unknown]
  - Road traffic accident [Unknown]

NARRATIVE: CASE EVENT DATE: 2018
